FAERS Safety Report 25085020 (Version 2)
Quarter: 2025Q1

REPORT INFORMATION
  Report Type: Report from Study
  Country: US (occurrence: US)
  Receive Date: 20250317
  Receipt Date: 20250320
  Transmission Date: 20250409
  Serious: Yes (Death, Life-Threatening, Hospitalization, Other)
  Sender: ABBVIE
  Company Number: US-ABBVIE-6180885

PATIENT
  Age: 41 Year
  Sex: Male

DRUGS (8)
  1. HUMIRA [Suspect]
     Active Substance: ADALIMUMAB
     Indication: Colitis ulcerative
     Route: 058
     Dates: start: 20161123, end: 20170907
  2. OXYCODONE [Concomitant]
     Active Substance: OXYCODONE
     Indication: Pain
     Route: 048
     Dates: start: 20231218, end: 20250309
  3. AZATHIOPRINE [Suspect]
     Active Substance: AZATHIOPRINE
     Indication: Colitis ulcerative
     Route: 048
     Dates: start: 20150801, end: 20160413
  4. AZATHIOPRINE [Suspect]
     Active Substance: AZATHIOPRINE
     Indication: Colitis ulcerative
     Route: 048
     Dates: start: 20160414, end: 20170302
  5. URSODIOL [Concomitant]
     Active Substance: URSODIOL
     Indication: Skin irritation
     Route: 048
     Dates: start: 20060320, end: 20250309
  6. LEVEMIR [Concomitant]
     Active Substance: INSULIN DETEMIR
     Indication: Type 1 diabetes mellitus
     Route: 058
     Dates: start: 20180222, end: 20250309
  7. NOVORAPID [Concomitant]
     Active Substance: INSULIN ASPART
     Indication: Type 1 diabetes mellitus
     Route: 058
     Dates: start: 20180222, end: 20250309
  8. COLESEVELAM [Concomitant]
     Active Substance: COLESEVELAM
     Indication: Product used for unknown indication
     Route: 048
     Dates: start: 20191127, end: 20250309

REACTIONS (1)
  - Cholangiocarcinoma [Fatal]

NARRATIVE: CASE EVENT DATE: 20250110
